FAERS Safety Report 25943071 (Version 1)
Quarter: 2025Q4

REPORT INFORMATION
  Report Type: Spontaneous
  Country: JP (occurrence: JP)
  Receive Date: 20251021
  Receipt Date: 20251021
  Transmission Date: 20260118
  Serious: Yes (Other)
  Sender: COSETTE PHARMACEUTICALS INC
  Company Number: JP-ASTELLAS-2025-AER-055581

PATIENT
  Age: 71 Year
  Sex: Male
  Weight: 42 kg

DRUGS (8)
  1. AMBIEN [Suspect]
     Active Substance: ZOLPIDEM TARTRATE
     Indication: Product used for unknown indication
     Dosage: BEFORE BEDTIME
     Route: 065
  2. CANDESARTAN [Concomitant]
     Active Substance: CANDESARTAN
     Indication: Product used for unknown indication
     Dosage: AFTER BREAKFAST
     Route: 065
  3. RABEPRAZOLE [Concomitant]
     Active Substance: RABEPRAZOLE
     Indication: Product used for unknown indication
     Dosage: AFTER BREAKFAST
     Route: 065
  4. PREDNISOLONE [Concomitant]
     Active Substance: PREDNISOLONE
     Indication: Product used for unknown indication
     Dosage: AFTER BREAKFAST
     Route: 065
  5. POLAPREZINC [Concomitant]
     Active Substance: POLAPREZINC
     Indication: Product used for unknown indication
     Dosage: AFTER BREAKFAST, BEFORE BEDTIME
     Route: 065
  6. LOXOPROFEN [Concomitant]
     Active Substance: LOXOPROFEN
     Indication: Product used for unknown indication
     Dosage: AFTER BREAKFAST, LUNCH, AND DINNER
     Route: 065
  7. OXYCODONE HYDROCHLORIDE [Concomitant]
     Active Substance: OXYCODONE HYDROCHLORIDE
     Indication: Product used for unknown indication
     Dosage: WHEN HAVING PAIN
     Route: 065
  8. INSULIN HUMAN [Concomitant]
     Active Substance: INSULIN HUMAN
     Indication: Product used for unknown indication
     Route: 065

REACTIONS (1)
  - Fulminant type 1 diabetes mellitus [Unknown]
